FAERS Safety Report 17758760 (Version 1)
Quarter: 2020Q2

REPORT INFORMATION
  Report Type: Spontaneous
  Country: US (occurrence: US)
  Receive Date: 20200507
  Receipt Date: 20200507
  Transmission Date: 20200714
  Serious: Yes (Disabling)
  Sender: FDA-Public Use
  Company Number: US-CELLTRION INC.-2020US022084

PATIENT

DRUGS (2)
  1. INFLECTRA [Suspect]
     Active Substance: INFLIXIMAB-DYYB
     Indication: CROHN^S DISEASE
     Dosage: TWO INJECTIONS OF INFLECTRA
     Dates: start: 202001, end: 20200225
  2. INFLECTRA [Suspect]
     Active Substance: INFLIXIMAB-DYYB
     Dosage: TWO INJECTIONS OF INFLECTRA
     Dates: start: 202001, end: 20200225

REACTIONS (8)
  - Adverse drug reaction [Recovered/Resolved with Sequelae]
  - Musculoskeletal disorder [Unknown]
  - Pain in extremity [Unknown]
  - Product substitution [Unknown]
  - Peripheral swelling [Unknown]
  - Arthralgia [Unknown]
  - Drug specific antibody [Unknown]
  - Finger deformity [Recovering/Resolving]

NARRATIVE: CASE EVENT DATE: 202001
